FAERS Safety Report 9220125 (Version 1)
Quarter: 2013Q2

REPORT INFORMATION
  Report Type: Spontaneous
  Country: US (occurrence: US)
  Receive Date: 20130409
  Receipt Date: 20130409
  Transmission Date: 20140414
  Serious: No
  Sender: FDA-Public Use
  Company Number: US-ROCHE-1211843

PATIENT
  Age: 2 Year
  Sex: Female

DRUGS (1)
  1. RITUXAN [Suspect]
     Indication: OPSOCLONUS MYOCLONUS
     Route: 042

REACTIONS (1)
  - Emotional disorder [Recovered/Resolved]
